FAERS Safety Report 12852303 (Version 2)
Quarter: 2016Q4

REPORT INFORMATION
  Report Type: Report from Study
  Country: US (occurrence: US)
  Receive Date: 20161017
  Receipt Date: 20161107
  Transmission Date: 20170207
  Serious: Yes (Death)
  Sender: FDA-Public Use
  Company Number: US-B.I. PHARMACEUTICALS,INC./RIDGEFIELD-2016-BI-36279BP

PATIENT
  Sex: Female

DRUGS (2)
  1. OFEV [Suspect]
     Active Substance: NINTEDANIB
     Indication: IDIOPATHIC PULMONARY FIBROSIS
     Route: 048
     Dates: start: 20160603
  2. OFEV [Suspect]
     Active Substance: NINTEDANIB
     Route: 048

REACTIONS (11)
  - Vomiting [Unknown]
  - Somnolence [Unknown]
  - Seasonal allergy [Unknown]
  - Diarrhoea [Unknown]
  - Nausea [Unknown]
  - Conjunctivitis [Unknown]
  - Cough [Unknown]
  - Idiopathic pulmonary fibrosis [Fatal]
  - Angina pectoris [Unknown]
  - Sleep apnoea syndrome [Fatal]
  - Dyspnoea [Unknown]
